FAERS Safety Report 18354398 (Version 1)
Quarter: 2020Q4

REPORT INFORMATION
  Report Type: Spontaneous
  Country: US (occurrence: US)
  Receive Date: 20201006
  Receipt Date: 20201006
  Transmission Date: 20210114
  Serious: Yes (Hospitalization)
  Sender: FDA-Public Use
  Company Number: None

PATIENT
  Age: 54 Year
  Sex: Male
  Weight: 76.5 kg

DRUGS (1)
  1. BRENTUXIMAB [Suspect]
     Active Substance: BRENTUXIMAB VEDOTIN
     Route: 042

REACTIONS (8)
  - Infusion site pain [None]
  - Infusion site swelling [None]
  - Dermatitis [None]
  - Infusion site erythema [None]
  - Toxic skin eruption [None]
  - Cellulitis [None]
  - Epidermal necrosis [None]
  - Dermatitis bullous [None]

NARRATIVE: CASE EVENT DATE: 20200923
